FAERS Safety Report 15555298 (Version 1)
Quarter: 2018Q4

REPORT INFORMATION
  Report Type: Spontaneous
  Country: US (occurrence: US)
  Receive Date: 20181022
  Receipt Date: 20181022
  Transmission Date: 20190205
  Serious: Yes (Hospitalization)
  Sender: FDA-Public Use
  Company Number: None

PATIENT
  Age: 73 Year
  Sex: Male
  Weight: 96.3 kg

DRUGS (3)
  1. LENALIDOMIDE (CC-5013) [Suspect]
     Active Substance: LENALIDOMIDE
     Dates: end: 20181008
  2. DEXAMETHASONE. [Suspect]
     Active Substance: DEXAMETHASONE
     Dates: end: 20181006
  3. VELCADE [Suspect]
     Active Substance: BORTEZOMIB
     Dates: end: 20181005

REACTIONS (3)
  - Diarrhoea [None]
  - Renal tubular necrosis [None]
  - Pneumonia [None]

NARRATIVE: CASE EVENT DATE: 20181010
